FAERS Safety Report 25190571 (Version 1)
Quarter: 2025Q2

REPORT INFORMATION
  Report Type: Spontaneous
  Country: TW (occurrence: TW)
  Receive Date: 20250411
  Receipt Date: 20250411
  Transmission Date: 20250717
  Serious: Yes (Death)
  Sender: HETERO
  Company Number: TW-HETERO-HET2025TW01822

PATIENT
  Age: 58 Year
  Sex: Male

DRUGS (5)
  1. OSELTAMIVIR [Suspect]
     Active Substance: OSELTAMIVIR
     Indication: Influenza
     Route: 065
  2. OSELTAMIVIR [Suspect]
     Active Substance: OSELTAMIVIR
     Route: 048
  3. OSELTAMIVIR [Suspect]
     Active Substance: OSELTAMIVIR
     Route: 065
  4. PERAMIVIR [Concomitant]
     Active Substance: PERAMIVIR
     Indication: Influenza
     Route: 042
  5. CYTARABINE [Concomitant]
     Active Substance: CYTARABINE
     Indication: Chemotherapy
     Route: 065

REACTIONS (2)
  - Drug resistance [Fatal]
  - Respiratory failure [Fatal]
